FAERS Safety Report 4628010-X (Version None)
Quarter: 2005Q2

REPORT INFORMATION
  Report Type: 
  Country: None (occurrence: None)
  Receive Date: 20050406
  Receipt Date: 20050330
  Transmission Date: 20051028
  Serious: Yes (Other)
  Sender: FDA-Public Use
  Company Number: US-ROCHE-400261

PATIENT
  Sex: Female

DRUGS (6)
  1. XELODA [Suspect]
     Route: 048
  2. OXALIPLATIN [Concomitant]
  3. AVASTIN [Concomitant]
  4. LEXAPRO [Concomitant]
  5. SEROQUEL [Concomitant]
  6. METHADONE HCL [Concomitant]

REACTIONS (1)
  - HALLUCINATION [None]
